FAERS Safety Report 4378207-1 (Version None)
Quarter: 2004Q2

REPORT INFORMATION
  Report Type: 
  Country: None (occurrence: None)
  Receive Date: 20040609
  Receipt Date: 20040520
  Transmission Date: 20050107
  Serious: Yes (Death)
  Sender: FDA-Public Use
  Company Number: GBS040514921

PATIENT
  Age: 66 Year
  Sex: Female
  Weight: 41 kg

DRUGS (4)
  1. FLUOXETINE [Suspect]
     Indication: DEPRESSION
     Dosage: 20 MG/2 DAY
  2. PREMARIN [Concomitant]
  3. BUSPIRONE [Concomitant]
  4. DIAZEPAM [Concomitant]

REACTIONS (24)
  - AGITATION [None]
  - ANXIETY [None]
  - ATHEROSCLEROSIS [None]
  - CONDITION AGGRAVATED [None]
  - CORONARY ARTERY DISEASE [None]
  - CORONARY ARTERY STENOSIS [None]
  - DRUG SCREEN POSITIVE [None]
  - FAMILY STRESS [None]
  - HEPATIC CONGESTION [None]
  - MEDICATION ERROR [None]
  - MENTAL IMPAIRMENT [None]
  - NERVOUSNESS [None]
  - OVARIAN CYST [None]
  - OVERDOSE [None]
  - PSYCHOMOTOR HYPERACTIVITY [None]
  - PULMONARY CONGESTION [None]
  - PULMONARY OEDEMA [None]
  - RESTLESSNESS [None]
  - SHOCK [None]
  - SPLEEN CONGESTION [None]
  - SUICIDAL IDEATION [None]
  - THERMAL BURN [None]
  - TREMOR [None]
  - URINE ABNORMALITY [None]
